FAERS Safety Report 21090551 (Version 1)
Quarter: 2022Q3

REPORT INFORMATION
  Report Type: Spontaneous
  Country: IT (occurrence: IT)
  Receive Date: 20220715
  Receipt Date: 20220715
  Transmission Date: 20221026
  Serious: Yes (Life-Threatening, Hospitalization)
  Sender: FDA-Public Use
  Company Number: IT-STRIDES ARCOLAB LIMITED-2022SP008722

PATIENT
  Age: 17 Year
  Sex: Male

DRUGS (4)
  1. METHYLPHENIDATE [Suspect]
     Active Substance: METHYLPHENIDATE
     Indication: Product used for unknown indication
     Dosage: UNK, PER DAY
     Route: 065
  2. BACLOFEN [Suspect]
     Active Substance: BACLOFEN
     Indication: Product used for unknown indication
     Dosage: UNK, PER DAY
     Route: 048
  3. BACLOFEN [Suspect]
     Active Substance: BACLOFEN
     Dosage: UNK, DOSE DECREASED
     Route: 065
  4. 4-AMINO-3-PHENYLBUTYRIC ACID [Suspect]
     Active Substance: 4-AMINO-3-PHENYLBUTYRIC ACID
     Indication: Product used for unknown indication
     Dosage: 1.6 GRAM PER DAY
     Route: 065

REACTIONS (10)
  - Coma [Unknown]
  - Suicide attempt [Unknown]
  - Substance abuse [Unknown]
  - Substance dependence [Unknown]
  - Urinary retention [Unknown]
  - Withdrawal syndrome [Unknown]
  - Depression [Unknown]
  - Confusional state [Unknown]
  - Seizure [Unknown]
  - Toxicity to various agents [Unknown]
